FAERS Safety Report 11986436 (Version 1)
Quarter: 2016Q1

REPORT INFORMATION
  Report Type: Spontaneous
  Country: US (occurrence: US)
  Receive Date: 20160202
  Receipt Date: 20160202
  Transmission Date: 20160526
  Serious: No
  Sender: FDA-Public Use
  Company Number: US-UCBSA-2014021441

PATIENT
  Sex: Female

DRUGS (2)
  1. EPANUTIN [Concomitant]
     Active Substance: PHENYTOIN SODIUM
  2. KEPPRA [Suspect]
     Active Substance: LEVETIRACETAM
     Indication: SEIZURE

REACTIONS (2)
  - Ear pain [Unknown]
  - Ear pruritus [Unknown]
